FAERS Safety Report 7591482-5 (Version None)
Quarter: 2011Q3

REPORT INFORMATION
  Report Type: 
  Country: None (occurrence: None)
  Receive Date: 20110701
  Receipt Date: 20110701
  Transmission Date: 20111222
  Serious: Yes (Life-Threatening, Hospitalization, Other)
  Sender: FDA-Public Use
  Company Number: None

PATIENT
  Age: 81 Year
  Sex: Female
  Weight: 56.6996 kg

DRUGS (1)
  1. BEVACIZUMAB [Suspect]
     Indication: MACULAR DEGENERATION
     Dates: start: 20100526, end: 20101013

REACTIONS (5)
  - CEREBROVASCULAR ACCIDENT [None]
  - CHEST PAIN [None]
  - NAUSEA [None]
  - GASTRITIS [None]
  - HEADACHE [None]
